FAERS Safety Report 15172066 (Version 1)
Quarter: 2018Q3

REPORT INFORMATION
  Report Type: Spontaneous
  Country: IT (occurrence: IT)
  Receive Date: 20180720
  Receipt Date: 20180720
  Transmission Date: 20181010
  Serious: Yes (Hospitalization)
  Sender: FDA-Public Use
  Company Number: IT-PFIZER INC-2018288126

PATIENT
  Age: 17 Year
  Sex: Female
  Weight: 65 kg

DRUGS (2)
  1. ETHINYLESTRADIOL/GESTODENE [Interacting]
     Active Substance: ETHINYL ESTRADIOL\GESTODENE
     Indication: ORAL CONTRACEPTION
     Dosage: UNK
     Route: 048
  2. ATORVASTATIN CALCIUM. [Suspect]
     Active Substance: ATORVASTATIN CALCIUM
     Dosage: 10 MG, UNK

REACTIONS (3)
  - Acute myocardial infarction [Recovered/Resolved]
  - Blood cholesterol increased [None]
  - Drug interaction [Unknown]
